FAERS Safety Report 4846242-2 (Version None)
Quarter: 2005Q4

REPORT INFORMATION
  Report Type: 
  Country: None (occurrence: None)
  Receive Date: 20051115
  Receipt Date: 20050826
  Transmission Date: 20060501
  Serious: No
  Sender: FDA-Public Use
  Company Number: 415582

PATIENT
  Age: 40 Year
  Sex: Male
  Weight: 100.2 kg

DRUGS (1)
  1. PEGASYS [Suspect]
     Indication: HEPATITIS C VIRUS
     Dosage: 180 MCG  1 PER WEEK  SUBCUTANEOUS
     Route: 058
     Dates: start: 20050517, end: 20050621

REACTIONS (2)
  - RETINAL EXUDATES [None]
  - RETINAL OEDEMA [None]
